FAERS Safety Report 6179980-2 (Version None)
Quarter: 2009Q2

REPORT INFORMATION
  Report Type: 
  Country: None (occurrence: None)
  Receive Date: 20090505
  Receipt Date: 20090406
  Transmission Date: 20091009
  Serious: No
  Sender: FDA-Public Use
  Company Number: IT-ALEXION-A200900268

PATIENT

DRUGS (1)
  1. SOLIRIS [Suspect]
     Indication: PAROXYSMAL NOCTURNAL HAEMOGLOBINURIA
     Dosage: 900 MG, UNK
     Route: 042
     Dates: start: 20081231

REACTIONS (4)
  - ARTHRALGIA [None]
  - HAEMOGLOBIN DECREASED [None]
  - MASTITIS [None]
  - PLATELET COUNT DECREASED [None]
